FAERS Safety Report 17321509 (Version 2)
Quarter: 2020Q1

REPORT INFORMATION
  Report Type: Spontaneous
  Country: JP (occurrence: JP)
  Receive Date: 20200126
  Receipt Date: 20200212
  Transmission Date: 20200409
  Serious: Yes (Death, Hospitalization, Other)
  Sender: FDA-Public Use
  Company Number: JP-PFIZER INC-2019508625

PATIENT
  Age: 74 Year
  Sex: Male

DRUGS (12)
  1. VANCOMYCIN HCL [Suspect]
     Active Substance: VANCOMYCIN HYDROCHLORIDE
     Indication: INFECTION
     Dosage: 1500 MG, 1X/DAY
     Route: 042
     Dates: start: 20180723, end: 20180724
  2. AZULFIDINE [Concomitant]
     Active Substance: SULFASALAZINE
     Indication: RHEUMATOID ARTHRITIS
     Dosage: 250 MG, EVERY 12 HOURS
     Route: 048
     Dates: start: 20180524, end: 20180606
  3. BENET [Concomitant]
     Active Substance: RISEDRONATE SODIUM
     Indication: OSTEOPOROSIS
     Dosage: 75 MG, UNK
     Route: 048
     Dates: start: 20180621, end: 20180717
  4. HYPEN [ETODOLAC] [Concomitant]
     Active Substance: ETODOLAC
     Indication: RHEUMATOID ARTHRITIS
     Dosage: 200 MG, UNK
     Route: 048
     Dates: start: 20180510, end: 20180620
  5. GASTER [Concomitant]
     Active Substance: FAMOTIDINE
     Indication: PROPHYLAXIS
     Dosage: 20 MG, UNK
     Route: 048
     Dates: start: 20180510, end: 20180620
  6. CEFMETAZOLE NA [Suspect]
     Active Substance: CEFMETAZOLE
     Indication: PROPHYLAXIS
     Dosage: 1 G, CYCLIC(ONCE EVERY 12 HRS)
     Route: 042
     Dates: start: 20180718, end: 20180724
  7. CALFINA [ALFACALCIDOL] [Concomitant]
     Active Substance: ALFACALCIDOL
     Indication: OSTEOPOROSIS
     Dosage: 0.25 ?G, ONCE DAILY
     Route: 048
     Dates: start: 20180612, end: 20180731
  8. LANSOPRAZOLE. [Concomitant]
     Active Substance: LANSOPRAZOLE
     Indication: PROPHYLAXIS
     Dosage: 10 MG, 1X/DAY
     Route: 048
     Dates: start: 20180621, end: 20180720
  9. CARERAM [Suspect]
     Active Substance: IGURATIMOD
     Indication: RHEUMATOID ARTHRITIS
     Dosage: 25 MG, 1X/DAY
     Route: 048
     Dates: start: 20180621, end: 20180717
  10. SULBACILLIN [Suspect]
     Active Substance: AMPICILLIN SODIUM\SULBACTAM SODIUM
     Indication: INFECTION
     Dosage: 3 G, CYCLIC(ONCE EVERY 6 HOURS)
     Route: 042
     Dates: start: 20180724, end: 20180730
  11. CELECOX [Suspect]
     Active Substance: CELECOXIB
     Indication: RHEUMATOID ARTHRITIS
     Dosage: CYCLIC (ONCE EVERY 12 HOURS)
     Route: 048
     Dates: start: 20180621, end: 20180723
  12. AZULFIDINE [Concomitant]
     Active Substance: SULFASALAZINE
     Dosage: 500 MG, EVERY 12 HOURS
     Route: 048
     Dates: start: 20180607, end: 20180731

REACTIONS (5)
  - Septic shock [Fatal]
  - Staphylococcus test positive [Unknown]
  - Acute respiratory distress syndrome [Unknown]
  - Diverticulitis [Not Recovered/Not Resolved]
  - Toxic epidermal necrolysis [Fatal]

NARRATIVE: CASE EVENT DATE: 20180718
